FAERS Safety Report 9398515 (Version 3)
Quarter: 2015Q3

REPORT INFORMATION
  Report Type: Report from Study
  Country: DE (occurrence: DE)
  Receive Date: 20130712
  Receipt Date: 20150819
  Transmission Date: 20151125
  Serious: Yes (Hospitalization)
  Sender: FDA-Public Use
  Company Number: PHHY2013DE073277

PATIENT
  Age: 69 Year
  Sex: Female

DRUGS (27)
  1. ICL670A [Suspect]
     Active Substance: DEFERASIROX
     Dosage: 2 DF, QD, (DAILY DOSE 1000 MG)
     Route: 048
     Dates: start: 20120803, end: 20121121
  2. ICL670A [Suspect]
     Active Substance: DEFERASIROX
     Dosage: 2 DF, QD (DAILY DOSE 1000 MG)
     Route: 048
     Dates: start: 20130209, end: 20130702
  3. SALBUTAMOL [Concomitant]
     Active Substance: ALBUTEROL
     Indication: PRODUCT USED FOR UNKNOWN INDICATION
     Dosage: UNK UKN, UNK
     Route: 065
     Dates: start: 19950101
  4. MCP [Concomitant]
     Active Substance: METOCLOPRAMIDE HYDROCHLORIDE
     Indication: PRODUCT USED FOR UNKNOWN INDICATION
     Dosage: 30 DRP, 3 TIMES A DAY
     Route: 065
     Dates: start: 20111221, end: 20120202
  5. METAMIZOLE [Concomitant]
     Active Substance: METAMIZOLE
     Indication: PRODUCT USED FOR UNKNOWN INDICATION
     Route: 065
     Dates: start: 20130111
  6. CERUCAL [Concomitant]
     Active Substance: METOCLOPRAMIDE HYDROCHLORIDE
     Indication: PRODUCT USED FOR UNKNOWN INDICATION
     Dosage: UNK UNK, PRN
     Route: 065
     Dates: start: 20130111
  7. VERAPAMIL [Concomitant]
     Active Substance: VERAPAMIL HYDROCHLORIDE
     Indication: HYPERTENSION
     Dosage: 240 MG, QD
     Route: 048
  8. ICL670A [Suspect]
     Active Substance: DEFERASIROX
     Dosage: 3 DF, QD (DAILY DOSE 1500 MG)
     Route: 048
     Dates: start: 20120425, end: 20120619
  9. ICL670A [Suspect]
     Active Substance: DEFERASIROX
     Dosage: 4 DF, QD (DAILY DOSE 2000 MG)
     Route: 048
     Dates: start: 20121221, end: 20130128
  10. XAGRID [Suspect]
     Active Substance: ANAGRELIDE HYDROCHLORIDE
     Indication: THROMBOCYTOSIS
     Dosage: 1 DF, TID (3X1/D)
     Route: 065
     Dates: start: 20121220
  11. OMEPRAZOLE. [Concomitant]
     Active Substance: OMEPRAZOLE
     Indication: PRODUCT USED FOR UNKNOWN INDICATION
     Dosage: 40 MG, DAILY
     Route: 065
     Dates: start: 20111221, end: 20120202
  12. TRIARESE [Concomitant]
     Indication: HYPERTENSION
     Dosage: 25 MG, QD
     Route: 048
  13. ICL670A [Suspect]
     Active Substance: DEFERASIROX
     Dosage: 4 DF, QD (DAILY DOSE 2000 MG)
     Route: 048
     Dates: start: 20120215, end: 20120424
  14. TRIAMTERENE. [Concomitant]
     Active Substance: TRIAMTERENE
     Indication: PRODUCT USED FOR UNKNOWN INDICATION
     Dosage: 1 DF, QD
     Route: 065
     Dates: start: 20000101
  15. AEROSOL [Concomitant]
     Indication: PRODUCT USED FOR UNKNOWN INDICATION
     Dosage: UNK UKN, UNK
     Route: 065
     Dates: start: 19950101
  16. SPIRIVA [Concomitant]
     Active Substance: TIOTROPIUM BROMIDE MONOHYDRATE
     Indication: PRODUCT USED FOR UNKNOWN INDICATION
     Dosage: UNK UKN, ON DEMAND
     Route: 065
     Dates: start: 19950101
  17. ICL670A [Suspect]
     Active Substance: DEFERASIROX
     Dosage: 2 DF, QD (DAILY DOSE 1000 MG)
     Route: 048
     Dates: start: 20121129, end: 20121220
  18. OPIPRAMOL [Concomitant]
     Active Substance: OPIPRAMOL
     Indication: PRODUCT USED FOR UNKNOWN INDICATION
     Dosage: 150 MG, QD
     Route: 048
  19. EUPHYLONG [Concomitant]
     Active Substance: THEOPHYLLINE ANHYDROUS
     Indication: ASTHMA
     Dosage: 375 MG, QD
     Route: 048
  20. PANTOPRAZOLE [Concomitant]
     Active Substance: PANTOPRAZOLE SODIUM
     Indication: GASTRIC DISORDER
     Dosage: 40 MG, QD
     Route: 048
  21. ICL670A [Suspect]
     Active Substance: DEFERASIROX
     Indication: MYELODYSPLASTIC SYNDROME
     Dosage: 3 DF, QD (DAILY DOSE 1500 MG)
     Route: 048
     Dates: start: 20120104, end: 20120110
  22. ICL670A [Suspect]
     Active Substance: DEFERASIROX
     Dosage: 2 DF, QD, (DAILY DOSE 1000 MG)
     Route: 048
     Dates: start: 20120620, end: 20120718
  23. THEOPHYLLINE [Concomitant]
     Active Substance: THEOPHYLLINE ANHYDROUS
     Indication: PRODUCT USED FOR UNKNOWN INDICATION
     Dosage: 1 DF, QD
     Route: 065
     Dates: start: 19950101
  24. MACROGOL [Concomitant]
     Active Substance: POLYETHYLENE GLYCOLS
     Indication: PRODUCT USED FOR UNKNOWN INDICATION
     Dosage: UNK UNK, PRN
     Route: 065
     Dates: start: 20130123
  25. HYDROCHLOROTHIAZIDE. [Concomitant]
     Active Substance: HYDROCHLOROTHIAZIDE
     Indication: HYPERTENSION
     Dosage: 12.5 MG, QD
     Route: 048
  26. LISINOPRIL. [Concomitant]
     Active Substance: LISINOPRIL
     Indication: PRODUCT USED FOR UNKNOWN INDICATION
     Dosage: 2 DF, QD
     Route: 065
     Dates: start: 20000101
  27. DICLOFENAC [Concomitant]
     Active Substance: DICLOFENAC
     Indication: PRODUCT USED FOR UNKNOWN INDICATION
     Dosage: 1 DF, QD
     Route: 065
     Dates: start: 20110408

REACTIONS (1)
  - Asthenia [Not Recovered/Not Resolved]

NARRATIVE: CASE EVENT DATE: 20130705
